FAERS Safety Report 18192250 (Version 2)
Quarter: 2020Q3

REPORT INFORMATION
  Report Type: Spontaneous
  Country: US (occurrence: US)
  Receive Date: 20200825
  Receipt Date: 20200826
  Transmission Date: 20201103
  Serious: No
  Sender: FDA-Public Use
  Company Number: US-PFIZER INC-2020327836

PATIENT
  Age: 68 Year
  Sex: Female
  Weight: 77.11 kg

DRUGS (2)
  1. AROMASIN [Suspect]
     Active Substance: EXEMESTANE
     Indication: BREAST CANCER FEMALE
     Dosage: 25 MG, 1X/DAY
     Route: 048
     Dates: start: 201705
  2. AROMASIN [Suspect]
     Active Substance: EXEMESTANE
     Indication: ANTIOESTROGEN THERAPY

REACTIONS (1)
  - Onychoclasis [Not Recovered/Not Resolved]
